FAERS Safety Report 18366682 (Version 6)
Quarter: 2022Q1

REPORT INFORMATION
  Report Type: Spontaneous
  Country: US (occurrence: US)
  Receive Date: 20201009
  Receipt Date: 20220207
  Transmission Date: 20220424
  Serious: Yes (Hospitalization, Other)
  Sender: FDA-Public Use
  Company Number: US-PFIZER INC-2018043205

PATIENT
  Age: 59 Year
  Sex: Male
  Weight: 48.08 kg

DRUGS (1)
  1. XELJANZ XR [Suspect]
     Active Substance: TOFACITINIB CITRATE
     Indication: Rheumatoid arthritis
     Dosage: 11 MG, 1X/DAY
     Route: 048

REACTIONS (12)
  - Myocardial infarction [Recovering/Resolving]
  - Dyspnoea [Recovered/Resolved]
  - Pain [Recovered/Resolved]
  - Cerebrovascular accident [Unknown]
  - Amnesia [Recovering/Resolving]
  - Asthenia [Recovering/Resolving]
  - Fine motor skill dysfunction [Recovering/Resolving]
  - Weight decreased [Recovering/Resolving]
  - Sensitivity to weather change [Recovering/Resolving]
  - Malaise [Unknown]
  - Memory impairment [Unknown]
  - Pain [Unknown]

NARRATIVE: CASE EVENT DATE: 20200601
